FAERS Safety Report 5921780-X (Version None)
Quarter: 2008Q4

REPORT INFORMATION
  Report Type: 
  Country: None (occurrence: None)
  Receive Date: 20081016
  Receipt Date: 20081016
  Transmission Date: 20090506
  Serious: Yes (Hospitalization)
  Sender: FDA-Public Use
  Company Number: None

PATIENT
  Age: 88 Year
  Sex: Male
  Weight: 63.23 kg

DRUGS (1)
  1. AMPICILLIN AND SULBACTAM [Suspect]
     Indication: INFECTION
     Dosage: 1.5 GM TID IV
     Route: 042
     Dates: start: 20081003, end: 20081004

REACTIONS (1)
  - DRUG HYPERSENSITIVITY [None]
